FAERS Safety Report 5216111-7 (Version None)
Quarter: 2007Q1

REPORT INFORMATION
  Report Type: 
  Country: None (occurrence: None)
  Receive Date: 20061122
  Receipt Date: 20060124
  Transmission Date: 20070707
  Serious: Yes (Hospitalization, Other)
  Sender: FDA-Public Use
  Company Number: 2006012317

PATIENT
  Age: 59 Year
  Sex: Male
  Weight: 104.3273 kg

DRUGS (7)
  1. LIPITOR [Suspect]
     Indication: BLOOD CHOLESTEROL INCREASED
     Dosage: 10 MG (10 MG, 1IN 1 D)
  2. GEMFIBROZIL [Concomitant]
  3. TOPROL-XL [Concomitant]
  4. ASPIRIN [Concomitant]
  5. GLUCOSAMINE (GLUCOSAMINE) [Concomitant]
  6. MULTIVITAMIN [Concomitant]
  7. CLONAZEPAM [Concomitant]

REACTIONS (2)
  - BLOOD SODIUM DECREASED [None]
  - PANCREATITIS [None]
